FAERS Safety Report 13687225 (Version 3)
Quarter: 2017Q4

REPORT INFORMATION
  Report Type: Spontaneous
  Country: US (occurrence: US)
  Receive Date: 20170623
  Receipt Date: 20171101
  Transmission Date: 20180320
  Serious: Yes (Other)
  Sender: FDA-Public Use
  Company Number: US-009507513-1706USA008974

PATIENT
  Age: 79 Year
  Sex: Male
  Weight: 45.03 kg

DRUGS (2)
  1. TICE BCG [Suspect]
     Active Substance: BACILLUS CALMETTE-GUERIN SUBSTRAIN TICE LIVE ANTIGEN
     Indication: BLADDER CANCER
     Dosage: 18 TREATMENTS
     Dates: start: 20110303, end: 20131114
  2. TICE BCG [Suspect]
     Active Substance: BACILLUS CALMETTE-GUERIN SUBSTRAIN TICE LIVE ANTIGEN
     Dosage: NUMBER OF PREVIOUS DOSES: 8
     Route: 043
     Dates: start: 20141121, end: 20141121

REACTIONS (7)
  - Fatigue [Unknown]
  - Pyrexia [Recovered/Resolved]
  - Transurethral bladder resection [Unknown]
  - Abnormal faeces [Not Recovered/Not Resolved]
  - Adverse event [Unknown]
  - Weight decreased [Unknown]
  - Urinary tract infection [Recovered/Resolved]

NARRATIVE: CASE EVENT DATE: 20120814
